FAERS Safety Report 24240438 (Version 1)
Quarter: 2024Q3

REPORT INFORMATION
  Report Type: Spontaneous
  Country: US (occurrence: US)
  Receive Date: 20240822
  Receipt Date: 20240822
  Transmission Date: 20241017
  Serious: Yes (Other)
  Sender: BRISTOL MYERS SQUIBB
  Company Number: US-BRISTOL-MYERS SQUIBB COMPANY-2024-132802

PATIENT
  Age: 74 Year
  Sex: Female
  Weight: 82.55 kg

DRUGS (1)
  1. POMALYST [Suspect]
     Active Substance: POMALIDOMIDE
     Indication: Plasma cell myeloma
     Dosage: 4MG CAPSULE EVERY OTHER DAY
     Route: 048
     Dates: end: 20240820

REACTIONS (2)
  - Plasma cell myeloma [Unknown]
  - Off label use [Unknown]
